FAERS Safety Report 12953931 (Version 27)
Quarter: 2023Q4

REPORT INFORMATION
  Report Type: Other
  Country: CA (occurrence: CA)
  Receive Date: 20161118
  Receipt Date: 20231101
  Transmission Date: 20240109
  Serious: Yes (Life-Threatening, Disabling, Other)
  Sender: FDA-Public Use
  Company Number: CA-002147023-PHHY2016CA053646

PATIENT
  Age: 46 Year
  Sex: Female

DRUGS (22)
  1. XOLAIR [Suspect]
     Active Substance: OMALIZUMAB
     Indication: Asthma
     Route: 058
     Dates: start: 20160324
  2. XOLAIR [Suspect]
     Active Substance: OMALIZUMAB
     Route: 058
     Dates: start: 20160404
  3. XOLAIR [Suspect]
     Active Substance: OMALIZUMAB
     Route: 058
     Dates: start: 20160427
  4. XOLAIR [Suspect]
     Active Substance: OMALIZUMAB
     Route: 058
     Dates: start: 20161102
  5. XOLAIR [Suspect]
     Active Substance: OMALIZUMAB
     Route: 058
  6. XOLAIR [Suspect]
     Active Substance: OMALIZUMAB
     Route: 058
     Dates: start: 20170220
  7. XOLAIR [Suspect]
     Active Substance: OMALIZUMAB
     Route: 058
     Dates: start: 20171113
  8. XOLAIR [Suspect]
     Active Substance: OMALIZUMAB
     Route: 058
     Dates: start: 2018
  9. XOLAIR [Suspect]
     Active Substance: OMALIZUMAB
     Route: 058
     Dates: start: 20191203
  10. XOLAIR [Suspect]
     Active Substance: OMALIZUMAB
     Route: 058
     Dates: start: 20200113
  11. XOLAIR [Suspect]
     Active Substance: OMALIZUMAB
     Route: 058
     Dates: start: 20200225, end: 20210120
  12. XOLAIR [Suspect]
     Active Substance: OMALIZUMAB
     Route: 058
     Dates: start: 20160331
  13. XOLAIR [Suspect]
     Active Substance: OMALIZUMAB
     Route: 058
     Dates: start: 20200910
  14. XOLAIR [Suspect]
     Active Substance: OMALIZUMAB
     Route: 058
     Dates: start: 20210113
  15. XOLAIR [Suspect]
     Active Substance: OMALIZUMAB
     Route: 058
     Dates: start: 20230928
  16. XOLAIR [Suspect]
     Active Substance: OMALIZUMAB
     Route: 065
  17. XOLAIR [Suspect]
     Active Substance: OMALIZUMAB
     Route: 058
     Dates: start: 20220331
  18. ZENHALE [Concomitant]
     Active Substance: FORMOTEROL FUMARATE\MOMETASONE FUROATE
     Indication: Product used for unknown indication
     Dosage: UNK, BID
     Route: 065
  19. VENTOLIN [Concomitant]
     Active Substance: ALBUTEROL SULFATE
     Indication: Product used for unknown indication
     Dosage: UNK
     Route: 065
  20. MONTELUKAST [Concomitant]
     Active Substance: MONTELUKAST SODIUM
     Indication: Product used for unknown indication
     Dosage: UNK
     Route: 065
  21. PANTOPRAZOLE [Concomitant]
     Active Substance: PANTOPRAZOLE
     Indication: Product used for unknown indication
     Dosage: UNK
     Route: 065
  22. EFFEXOR [Concomitant]
     Active Substance: VENLAFAXINE HYDROCHLORIDE
     Indication: Product used for unknown indication
     Dosage: 225 MG, QD
     Route: 065
     Dates: start: 2018

REACTIONS (32)
  - Gastric cancer stage IV [Unknown]
  - Movement disorder [Unknown]
  - Pneumonia [Unknown]
  - Bronchiectasis [Unknown]
  - Hepatic cancer [Unknown]
  - Gastrointestinal stromal tumour [Unknown]
  - Metastases to liver [Unknown]
  - Neoplasm malignant [Unknown]
  - Dysstasia [Unknown]
  - Gastrointestinal disorder [Unknown]
  - Borderline personality disorder [Unknown]
  - Anxiety [Unknown]
  - Mobility decreased [Unknown]
  - Vomiting [Unknown]
  - Productive cough [Not Recovered/Not Resolved]
  - Intra-abdominal fluid collection [Unknown]
  - Anaemia [Unknown]
  - Blood phosphorus decreased [Unknown]
  - Hypotension [Unknown]
  - Nasal congestion [Recovering/Resolving]
  - Sinusitis [Unknown]
  - Influenza [Unknown]
  - Asthma [Unknown]
  - Illness [Not Recovered/Not Resolved]
  - Nausea [Unknown]
  - Headache [Recovered/Resolved]
  - Pain [Unknown]
  - Pyrexia [Unknown]
  - Abdominal pain [Unknown]
  - Injection site bruising [Unknown]
  - Injection site haematoma [Unknown]
  - Inappropriate schedule of product administration [Unknown]

NARRATIVE: CASE EVENT DATE: 20170101
